FAERS Safety Report 4472463-7 (Version None)
Quarter: 2004Q4

REPORT INFORMATION
  Report Type: 
  Country: None (occurrence: None)
  Receive Date: 20041007
  Receipt Date: 20040921
  Transmission Date: 20050328
  Serious: Yes (Hospitalization, Other)
  Sender: FDA-Public Use
  Company Number: 2000510

PATIENT
  Age: 43 Year
  Sex: Female

DRUGS (14)
  1. KEPPRA [Suspect]
     Indication: CONVULSION
     Dosage: PO
     Route: 048
     Dates: start: 20010201, end: 20011001
  2. KEPPRA [Suspect]
     Indication: CONVULSION
     Dosage: 375 MG PO
     Route: 048
     Dates: start: 20011001, end: 20020501
  3. KEPPRA [Suspect]
     Indication: CONVULSION
     Dosage: 250 MG 2/D PO
     Route: 048
     Dates: start: 20020501, end: 20020101
  4. KEPPRA [Suspect]
     Indication: CONVULSION
     Dosage: 375 MG 2/D PO
     Route: 048
     Dates: start: 20020101
  5. KEPPRA [Suspect]
     Indication: CONVULSION
     Dosage: 500 MG/D PO
     Route: 048
  6. KEPPRA [Suspect]
     Indication: CONVULSION
     Dosage: 1000 MG 2/D PO
     Route: 048
     Dates: end: 20030801
  7. LAMICTAL [Concomitant]
  8. TEGRETOL [Concomitant]
  9. DILANTIN [Concomitant]
  10. THYROID MEDICATION [Concomitant]
  11. HORMONE REPLACEMENT THERAPY [Concomitant]
  12. PHENOBARBITAL TAB [Concomitant]
  13. SYNTHROID [Concomitant]
  14. PREMPRO [Concomitant]

REACTIONS (12)
  - ABASIA [None]
  - CONDITION AGGRAVATED [None]
  - CONVULSION [None]
  - DIZZINESS [None]
  - FALL [None]
  - HEADACHE [None]
  - JOINT SPRAIN [None]
  - LOSS OF CONSCIOUSNESS [None]
  - MONOPLEGIA [None]
  - PHOTOSENSITIVITY REACTION [None]
  - TREMOR [None]
  - VERTIGO [None]
